FAERS Safety Report 26198203 (Version 1)
Quarter: 2025Q4

REPORT INFORMATION
  Report Type: Report from Study
  Country: CN (occurrence: CN)
  Receive Date: 20251224
  Receipt Date: 20251224
  Transmission Date: 20260117
  Serious: Yes (Death, Other)
  Sender: PFIZER
  Company Number: CN-TAKEDA-2023TUS064462

PATIENT
  Age: 60 Year
  Sex: Female

DRUGS (17)
  1. BRENTUXIMAB VEDOTIN [Suspect]
     Active Substance: BRENTUXIMAB VEDOTIN
     Indication: Peripheral T-cell lymphoma unspecified
     Dosage: 100 MILLIGRAM, Q3WEEKS
     Route: 041
     Dates: start: 20230530, end: 202409
  2. BOZHI GLYCOPEPTIDE [Concomitant]
     Indication: Prophylaxis
     Dosage: 4 MILLILITER, QD
     Route: 042
     Dates: start: 20230522, end: 20230531
  3. CEFOPERAZONE SODIUM\SULBACTAM [Concomitant]
     Active Substance: CEFOPERAZONE SODIUM\SULBACTAM
     Indication: Pneumonitis
     Dosage: 3 GRAM, Q8HR
     Route: 042
     Dates: start: 20230522, end: 20230601
  4. VORICONAZOLE [Concomitant]
     Active Substance: VORICONAZOLE
     Indication: Pneumonitis
     Dosage: 0.2 GRAM, Q12H
     Route: 042
     Dates: start: 20230522, end: 20230531
  5. CARBAZOCHROME SODIUM SULFONATE [Concomitant]
     Active Substance: CARBAZOCHROME SODIUM SULFONATE
     Indication: Prophylaxis
     Dosage: 80 MILLIGRAM, QD
     Route: 042
     Dates: start: 20230522, end: 20230531
  6. MAGNESIUM ISOGLYCYRRHIZINATE [Concomitant]
     Active Substance: MAGNESIUM ISOGLYCYRRHIZINATE
     Indication: Hepatic function abnormal
     Dosage: 200 MILLIGRAM, QD
     Route: 042
     Dates: start: 20230522, end: 20230531
  7. DEXAMETHASONE [Concomitant]
     Active Substance: DEXAMETHASONE
     Indication: Antiinflammatory therapy
     Dosage: 10 MILLIGRAM, QD
     Route: 042
     Dates: start: 20230525, end: 20230531
  8. DEXAMETHASONE [Concomitant]
     Active Substance: DEXAMETHASONE
     Indication: Antiallergic therapy
  9. ONDANSETRON [Concomitant]
     Active Substance: ONDANSETRON
     Indication: Antiemetic supportive care
     Dosage: 8 MILLIGRAM, BID
     Route: 048
     Dates: start: 20230525, end: 20230601
  10. ASPIRIN [Concomitant]
     Active Substance: ASPIRIN
     Indication: Antiemetic supportive care
     Dosage: UNK, QD
     Route: 048
     Dates: start: 20230525, end: 20230601
  11. LACTULOSE [Concomitant]
     Active Substance: LACTULOSE
     Indication: Constipation prophylaxis
     Dosage: 10 MILLILITER, QD
     Route: 048
     Dates: start: 20230527, end: 20230601
  12. EPRAZOLE [Concomitant]
     Indication: Prophylaxis
     Dosage: 5 MILLIGRAM, BID
     Route: 048
     Dates: start: 20230525, end: 20230601
  13. ILAPRAZOLE [Concomitant]
     Active Substance: ILAPRAZOLE
     Indication: Gastrointestinal mucosal disorder
     Dosage: 5 MG, 2X/DAY (ENTERIC COATED TABLET)
     Route: 048
     Dates: start: 20230525, end: 20230601
  14. APREPITANT [Concomitant]
     Active Substance: APREPITANT
     Indication: Antiemetic supportive care
     Dosage: 1 DF, 1X/DAY
     Route: 048
     Dates: start: 20230525, end: 20230601
  15. TUCIDINOSTAT [Concomitant]
     Active Substance: TUCIDINOSTAT
     Indication: Peripheral T-cell lymphoma unspecified
     Dosage: 20 MG, 2X/WEEK
     Route: 048
     Dates: start: 20230526, end: 20230601
  16. CARBAZOCHROME SODIUM SULFONATE [Concomitant]
     Active Substance: CARBAZOCHROME SODIUM SULFONATE
     Indication: Prophylaxis
     Dosage: 80 MILLIGRAM, QD
     Route: 042
     Dates: start: 20230522, end: 20230531
  17. BATROXOBIN [Concomitant]
     Active Substance: BATROXOBIN
     Indication: Haemorrhage prophylaxis
     Dosage: UNK
     Dates: start: 20230529, end: 20230531

REACTIONS (5)
  - Death [Fatal]
  - Lymphocyte percentage decreased [Unknown]
  - Neutrophil count decreased [Recovered/Resolved]
  - Pyrexia [Recovered/Resolved]
  - Blood lactate dehydrogenase increased [Unknown]

NARRATIVE: CASE EVENT DATE: 20230601
